FAERS Safety Report 8350698 (Version 2)
Quarter: 2013Q1

REPORT INFORMATION
  Report Type: Spontaneous
  Country: CA (occurrence: None)
  Receive Date: 20120111
  Receipt Date: 20130123
  Transmission Date: 20140127
  Serious: No
  Sender: FDA-Public Use
  Company Number: AECAN201100246

PATIENT
  Age: 57 Year
  Sex: Male

DRUGS (1)
  1. ALBUMIN [Suspect]
     Indication: PRODUCT USED FOR UNKNOWN INDICATION
     Dosage: 25 GM;TOTAL
     Route: 042
     Dates: start: 20110901, end: 20110903

REACTIONS (9)
  - Pyrexia [None]
  - Dyspnoea [None]
  - Hypertension [None]
  - Nausea [None]
  - Vomiting [None]
  - Tachycardia [None]
  - Flushing [None]
  - Anxiety [None]
  - Hypersensitivity [None]
